FAERS Safety Report 5209738-X (Version None)
Quarter: 2006Q4

REPORT INFORMATION
  Report Type: 
  Country: None (occurrence: None)
  Receive Date: 20061128
  Receipt Date: 20051111
  Transmission Date: 20070319
  Serious: Yes (Other)
  Sender: FDA-Public Use
  Company Number: 2005149699

PATIENT
  Age: 71 Year
  Sex: Male
  Weight: 72.5755 kg

DRUGS (5)
  1. TIKOSYN [Suspect]
     Indication: ATRIAL FIBRILLATION
     Dosage: 1  MG (0.5 MG, 2 IN 1 D)
     Dates: start: 20050715
  2. COUMADIN [Concomitant]
  3. UROXATRAL [Concomitant]
  4. BETAPACE [Concomitant]
  5. XANAX [Concomitant]

REACTIONS (3)
  - ATRIAL FIBRILLATION [None]
  - DEPRESSION [None]
  - STRESS [None]
